FAERS Safety Report 5892500-2 (Version None)
Quarter: 2008Q3

REPORT INFORMATION
  Report Type: 
  Country: None (occurrence: None)
  Receive Date: 20080923
  Receipt Date: 20080912
  Transmission Date: 20090109
  Serious: Yes (Other)
  Sender: FDA-Public Use
  Company Number: US-WYE-H05991708

PATIENT
  Sex: Female

DRUGS (2)
  1. PRISTIQ [Suspect]
     Route: 048
  2. ETHANOL [Suspect]
     Dosage: DRINKING BEER (UNKNOWN AMOUNT)
     Route: 048

REACTIONS (2)
  - AGGRESSION [None]
  - MANIA [None]
